FAERS Safety Report 5137283-9 (Version None)
Quarter: 2006Q4

REPORT INFORMATION
  Report Type: 
  Country: None (occurrence: None)
  Receive Date: 20061030
  Receipt Date: 20061018
  Transmission Date: 20070319
  Serious: Yes (Other)
  Sender: FDA-Public Use
  Company Number: DE-AMGEN-UK197267

PATIENT
  Sex: Male
  Weight: 95.5 kg

DRUGS (1)
  1. ARANESP [Suspect]
     Indication: DIALYSIS
     Route: 040
     Dates: start: 20061016, end: 20061016

REACTIONS (6)
  - BLOOD PRESSURE DECREASED [None]
  - COLD SWEAT [None]
  - FEELING HOT [None]
  - LOSS OF CONSCIOUSNESS [None]
  - PALLOR [None]
  - RESPIRATORY ARREST [None]
